FAERS Safety Report 7383365-0 (Version None)
Quarter: 2011Q1

REPORT INFORMATION
  Report Type: 
  Country: None (occurrence: None)
  Receive Date: 20110330
  Receipt Date: 20110321
  Transmission Date: 20110831
  Serious: Yes (Death, Hospitalization)
  Sender: FDA-Public Use
  Company Number: IN-SANOFI-AVENTIS-2011SA008639

PATIENT
  Age: 76 Year
  Sex: Male

DRUGS (5)
  1. DOCETAXEL [Suspect]
     Indication: PROSTATE CANCER
     Route: 041
     Dates: start: 20100101, end: 20100101
  2. BLINDED THERAPY [Suspect]
     Route: 048
     Dates: start: 20110113, end: 20110124
  3. PREDNISONE [Suspect]
     Indication: PROSTATE CANCER
     Route: 048
     Dates: start: 20110113, end: 20110123
  4. DOCETAXEL [Suspect]
     Route: 041
     Dates: start: 20101223, end: 20101223
  5. BLINDED THERAPY [Suspect]
     Indication: PROSTATE CANCER
     Route: 048
     Dates: start: 20100101, end: 20101201

REACTIONS (7)
  - ACUTE RESPIRATORY DISTRESS SYNDROME [None]
  - SEPTIC SHOCK [None]
  - PNEUMONIA [None]
  - HYPOXIA [None]
  - ASTHENIA [None]
  - RENAL FAILURE ACUTE [None]
  - PNEUMONITIS [None]
